FAERS Safety Report 9242655 (Version 1)
Quarter: 2013Q2

REPORT INFORMATION
  Report Type: Spontaneous
  Country: JP (occurrence: JP)
  Receive Date: 20130419
  Receipt Date: 20130419
  Transmission Date: 20140414
  Serious: Yes (Other)
  Sender: FDA-Public Use
  Company Number: JP-GLAXOSMITHKLINE-B0883246A

PATIENT
  Age: 92 Year
  Sex: Male

DRUGS (4)
  1. AVOLVE [Suspect]
     Indication: BENIGN PROSTATIC HYPERPLASIA
     Dosage: .5MG PER DAY
     Route: 048
     Dates: start: 20120509, end: 201206
  2. REMINYL [Concomitant]
     Indication: DEMENTIA
     Route: 048
  3. RISPERDAL [Concomitant]
     Route: 048
  4. SERENACE [Concomitant]
     Route: 048

REACTIONS (2)
  - Dementia [Unknown]
  - Poriomania [Unknown]
